FAERS Safety Report 4807724-2 (Version None)
Quarter: 2005Q4

REPORT INFORMATION
  Report Type: 
  Country: None (occurrence: None)
  Receive Date: 20051019
  Receipt Date: 20051005
  Transmission Date: 20060501
  Serious: Yes (Other)
  Sender: FDA-Public Use
  Company Number: 430002L05DEU

PATIENT
  Age: 23 Year
  Sex: Female

DRUGS (1)
  1. MITOXANTRONE [Suspect]
     Indication: MULTIPLE SCLEROSIS
     Dosage: 7 DOSAGE FORMS, INTRAVENOUS
     Route: 042

REACTIONS (6)
  - BLISTER [None]
  - HERPES SIMPLEX [None]
  - LEUKOPENIA [None]
  - SCRATCH [None]
  - SKIN NECROSIS [None]
  - ULCER [None]
